FAERS Safety Report 4571448-X (Version None)
Quarter: 2005Q1

REPORT INFORMATION
  Report Type: 
  Country: None (occurrence: None)
  Receive Date: 20050207
  Receipt Date: 20050124
  Transmission Date: 20050727
  Serious: Yes (Hospitalization, Other)
  Sender: FDA-Public Use
  Company Number: US-JNJFOC-20041102617

PATIENT
  Sex: Male
  Weight: 89.81 kg

DRUGS (15)
  1. REMICADE [Suspect]
     Route: 042
  2. REMICADE [Suspect]
     Route: 042
  3. VANCOMYCIN [Suspect]
     Indication: DRUG USE FOR UNKNOWN INDICATION
  4. KLONOPIN [Concomitant]
  5. SENOKOT [Concomitant]
  6. POTASSIUM CHLORIDE [Concomitant]
  7. INSULIN [Concomitant]
  8. CORDARONE [Concomitant]
  9. LORAZEPAM [Concomitant]
  10. MS CONTIN [Concomitant]
  11. LOPRESSOR [Concomitant]
  12. LEVOFLOXACIN [Concomitant]
  13. COUMADIN [Concomitant]
  14. PREVACID [Concomitant]
  15. PROVENTIL [Concomitant]
     Route: 055

REACTIONS (14)
  - BLOOD CULTURE POSITIVE [None]
  - CATHETER RELATED COMPLICATION [None]
  - EYELID PTOSIS [None]
  - FATIGUE [None]
  - LUPUS-LIKE SYNDROME [None]
  - PEPTOSTREPTOCOCCUS INFECTION [None]
  - PERICARDIAL EFFUSION [None]
  - PHLEBOTHROMBOSIS [None]
  - PLEURAL EFFUSION [None]
  - PNEUMONIA [None]
  - PULMONARY FIBROSIS [None]
  - RENAL IMPAIRMENT [None]
  - ROAD TRAFFIC ACCIDENT [None]
  - THROMBOSIS [None]
